FAERS Safety Report 13211024 (Version 5)
Quarter: 2018Q1

REPORT INFORMATION
  Report Type: Report from Study
  Country: US (occurrence: US)
  Receive Date: 20170210
  Receipt Date: 20180126
  Transmission Date: 20180508
  Serious: Yes (Hospitalization)
  Sender: FDA-Public Use
  Company Number: PHHO2015US014294

PATIENT
  Age: 56 Year
  Sex: Female

DRUGS (7)
  1. AFINITOR [Suspect]
     Active Substance: EVEROLIMUS
     Dosage: 6 MG, UNK
     Route: 048
     Dates: start: 20150922
  2. CAPECITABINE. [Suspect]
     Active Substance: CAPECITABINE
     Indication: BREAST CANCER METASTATIC
     Dosage: 2300 MG, UNK
     Route: 048
     Dates: start: 20150727, end: 20150830
  3. LAPATINIB [Suspect]
     Active Substance: LAPATINIB
     Indication: BREAST CANCER
     Dosage: 1000 MG, UNK
     Route: 048
     Dates: start: 20150727, end: 20150904
  4. DECADRON [Concomitant]
     Active Substance: DEXAMETHASONE
     Indication: PRODUCT USED FOR UNKNOWN INDICATION
     Dosage: 2 MG, QD
     Route: 048
  5. LAPATINIB [Suspect]
     Active Substance: LAPATINIB
     Dosage: 1000 MG, UNK
     Route: 048
     Dates: start: 20150922
  6. AFINITOR [Suspect]
     Active Substance: EVEROLIMUS
     Indication: BREAST CANCER METASTATIC
     Dosage: 6 MG, UNK
     Route: 048
     Dates: start: 20150727, end: 20150902
  7. CAPECITABINE. [Suspect]
     Active Substance: CAPECITABINE
     Dosage: 2300 MG, UNK
     Route: 048
     Dates: start: 20150922

REACTIONS (1)
  - Pneumonia [Recovered/Resolved]

NARRATIVE: CASE EVENT DATE: 20150910
